FAERS Safety Report 17665217 (Version 2)
Quarter: 2020Q2

REPORT INFORMATION
  Report Type: Report from Study
  Country: US (occurrence: US)
  Receive Date: 20200414
  Receipt Date: 20200421
  Transmission Date: 20200713
  Serious: Yes (Death, Other)
  Sender: FDA-Public Use
  Company Number: US-KYOWAKIRIN-2020BKK005571

PATIENT

DRUGS (1)
  1. NOURIANZ [Suspect]
     Active Substance: ISTRADEFYLLINE
     Indication: PARKINSON^S DISEASE
     Dosage: 40 MG, DAILY
     Route: 048
     Dates: start: 20200403, end: 202004

REACTIONS (3)
  - Death [Fatal]
  - Coronavirus infection [Unknown]
  - Hospice care [Unknown]

NARRATIVE: CASE EVENT DATE: 2020
